FAERS Safety Report 10838116 (Version 1)
Quarter: 2015Q1

REPORT INFORMATION
  Report Type: Spontaneous
  Country: US (occurrence: US)
  Receive Date: 20150219
  Receipt Date: 20150219
  Transmission Date: 20150721
  Serious: No
  Sender: FDA-Public Use
  Company Number: US-ABBVIE-14P-163-1229405-00

PATIENT
  Age: 57 Year
  Weight: 73.55 kg

DRUGS (3)
  1. HUMIRA [Suspect]
     Active Substance: ADALIMUMAB
     Indication: CROHN^S DISEASE
     Dates: start: 20140419, end: 20140419
  2. HUMIRA [Suspect]
     Active Substance: ADALIMUMAB
     Dates: start: 20140420, end: 20140420
  3. AZATHIOPRINE. [Concomitant]
     Active Substance: AZATHIOPRINE
     Indication: PRODUCT USED FOR UNKNOWN INDICATION
     Dates: start: 20140319, end: 20140320

REACTIONS (3)
  - Nausea [Unknown]
  - Headache [Unknown]
  - Overdose [Unknown]

NARRATIVE: CASE EVENT DATE: 20140420
